APPROVED DRUG PRODUCT: BUMETANIDE
Active Ingredient: BUMETANIDE
Strength: 1MG
Dosage Form/Route: TABLET;ORAL
Application: A213942 | Product #002 | TE Code: AB
Applicant: RUBICON RESEARCH LTD
Approved: Dec 27, 2024 | RLD: No | RS: No | Type: RX